FAERS Safety Report 10676482 (Version 1)
Quarter: 2014Q4

REPORT INFORMATION
  Report Type: Spontaneous
  Country: US (occurrence: None)
  Receive Date: 20141223
  Receipt Date: 20141223
  Transmission Date: 20150529
  Serious: Yes (Other)
  Sender: FDA-Public Use
  Company Number: None

PATIENT
  Age: 70 Year
  Sex: Female
  Weight: 77.11 kg

DRUGS (1)
  1. XARELTO [Suspect]
     Active Substance: RIVAROXABAN
     Indication: HIP ARTHROPLASTY
     Dosage: 1 PILL/DAY ONCE DAILY TAKEN BY MOUTH
     Route: 048
     Dates: start: 20140225, end: 20140312

REACTIONS (1)
  - Depression [None]

NARRATIVE: CASE EVENT DATE: 20140225
